FAERS Safety Report 5549809-1 (Version None)
Quarter: 2007Q4

REPORT INFORMATION
  Report Type: 
  Country: None (occurrence: None)
  Receive Date: 20071207
  Receipt Date: 20071207
  Transmission Date: 20080405
  Serious: No
  Sender: FDA-Public Use
  Company Number: None

PATIENT
  Sex: Female
  Weight: 3.6288 kg

DRUGS (1)
  1. AZITHROMYCIN [Suspect]
     Indication: MASTITIS
     Dosage: 1 DAILY PO
     Route: 048
     Dates: start: 20071204, end: 20071208

REACTIONS (4)
  - DIARRHOEA [None]
  - DRUG EXPOSURE VIA BREAST MILK [None]
  - HYPERSENSITIVITY [None]
  - NAUSEA [None]
